FAERS Safety Report 6119771 (Version 12)
Quarter: 2013Q1

REPORT INFORMATION
  Report Type: Spontaneous
  Country: US (occurrence: US)
  Receive Date: 20060831
  Receipt Date: 20130318
  Transmission Date: 20140127
  Serious: Yes (Death, Hospitalization, Other)
  Sender: FDA-Public Use
  Company Number: PHEH2006US10893

PATIENT
  Age: 48 Year
  Sex: Female
  Weight: 68.27 kg

DRUGS (62)
  1. ZOMETA [Suspect]
     Indication: METASTASES TO BONE
  2. ZOMETA [Suspect]
     Indication: LUNG NEOPLASM MALIGNANT
  3. FOSAMAX [Suspect]
     Route: 048
  4. OXYCONTIN [Suspect]
     Dosage: 40 MG, BID
     Route: 048
  5. AMBIEN [Suspect]
     Dosage: 5 MG, QHS
  6. SINGULAIR [Concomitant]
     Dosage: 10 MG, QD
     Route: 048
  7. BEXTRA [Concomitant]
  8. DIOVAN ^CIBA-GEIGY^ [Concomitant]
  9. EFFEXOR [Concomitant]
  10. ADVAIR [Concomitant]
  11. LORTAB [Concomitant]
  12. XANAX [Concomitant]
     Dosage: 0.5 DF, PRN
  13. AROMASIN [Concomitant]
     Dosage: 25 MG, QD
     Route: 048
  14. MOBIC [Concomitant]
     Dosage: 7.5 MG, QD
     Route: 048
  15. FASLODEX [Concomitant]
  16. MELOXICAM [Concomitant]
  17. TAMOXIFEN [Concomitant]
     Dates: start: 200306, end: 200406
  18. CARBOPLATIN [Concomitant]
  19. PACLITAXEL [Concomitant]
  20. ZOFRAN [Concomitant]
  21. DEXAMETHASONE [Concomitant]
  22. BENADRYL ^PARKE DAVIS^                  /AUT/ [Concomitant]
  23. RANITIDINE [Concomitant]
  24. HERCEPTIN ^GENENTECH^ [Concomitant]
  25. METHADONE [Concomitant]
  26. RITALIN [Concomitant]
  27. OXYCODONE [Concomitant]
  28. DURAGESIC [Concomitant]
  29. OXYFAST [Concomitant]
  30. TORADOL [Concomitant]
  31. ANCEF [Concomitant]
     Route: 042
  32. DEMEROL [Concomitant]
  33. ALBUTEROL [Concomitant]
  34. ANUSOL-HC [Concomitant]
  35. ATIVAN [Concomitant]
     Indication: ANXIETY
     Dosage: 0.25 MG
     Route: 048
  36. BENADRYL [Concomitant]
  37. HALDOL [Concomitant]
  38. ATROPINE [Concomitant]
     Route: 047
  39. BACLOFEN [Concomitant]
     Dosage: 5 MG
  40. BISACODYL [Concomitant]
  41. COLACE [Concomitant]
  42. DECADRAN [Concomitant]
     Dosage: 4 MG
  43. DILANTIN [Concomitant]
     Dosage: 100 MG
     Route: 048
  44. DIOVAN HCT [Concomitant]
     Dosage: 25 MG
  45. DITROPAN [Concomitant]
     Dosage: 5 MG
  46. LASIX [Concomitant]
     Dosage: 20MG
  47. LONOX [Concomitant]
  48. PRILOSEC [Concomitant]
     Dosage: 20 MG
     Route: 048
  49. SENNA [Concomitant]
  50. TRAZODONE [Concomitant]
  51. TYLENOL [Concomitant]
  52. DIPHENOXYLATE W/ATROPINE SULFATE [Concomitant]
  53. MAGNESIUM HYDROXIDE [Concomitant]
  54. PYRIDOXINE [Concomitant]
  55. VENLAFAXINE [Concomitant]
  56. DUONEB [Concomitant]
  57. HEPARIN LOCK FLUSH [Concomitant]
  58. ACETAMINOPHEN [Concomitant]
     Dosage: 500MG
  59. CITALOPRAM [Concomitant]
  60. DIPHENHYDRAMINE [Concomitant]
  61. FUROSEMIDE [Concomitant]
     Dosage: 20MG
  62. ROXANOL [Concomitant]

REACTIONS (97)
  - Death [Fatal]
  - Chronic obstructive pulmonary disease [Unknown]
  - Bronchitis [Unknown]
  - Emphysema [Unknown]
  - Dyspnoea [Unknown]
  - Intracranial aneurysm [Unknown]
  - Pleural fibrosis [Unknown]
  - Asthma [Unknown]
  - Pleural effusion [Unknown]
  - Arthritis [Unknown]
  - Aortic arteriosclerosis [Unknown]
  - Joint swelling [Unknown]
  - Osteoporosis [Unknown]
  - Osteonecrosis of jaw [Unknown]
  - Injury [Unknown]
  - Pain [Unknown]
  - Anxiety [Unknown]
  - Hypertension [Unknown]
  - Seasonal allergy [Unknown]
  - Allergic sinusitis [Unknown]
  - Pollakiuria [Unknown]
  - Crying [Unknown]
  - Breast calcifications [Unknown]
  - Dizziness [Unknown]
  - Vertigo [Unknown]
  - Nausea [Recovered/Resolved]
  - Vision blurred [Unknown]
  - Headache [Unknown]
  - Ear pain [Unknown]
  - Stress [Unknown]
  - Bruxism [Unknown]
  - Cerebral arteriosclerosis [Unknown]
  - Vascular calcification [Unknown]
  - Asthenia [Unknown]
  - Fatigue [Unknown]
  - Weight abnormal [Unknown]
  - Wheezing [Unknown]
  - Cough [Unknown]
  - Arthralgia [Unknown]
  - Musculoskeletal stiffness [Unknown]
  - Back pain [Unknown]
  - Haemangioma [Unknown]
  - Adnexa uteri cyst [Unknown]
  - Radiation fibrosis [Unknown]
  - Periarthritis [Unknown]
  - Hepatic mass [Unknown]
  - Intervertebral disc degeneration [Unknown]
  - Myelomalacia [Unknown]
  - Intervertebral disc protrusion [Unknown]
  - Osteosclerosis [Unknown]
  - Non-small cell lung cancer metastatic [Unknown]
  - Metastases to bone [Unknown]
  - Non-small cell lung cancer recurrent [Unknown]
  - Breast cancer metastatic [Unknown]
  - Breast mass [Unknown]
  - Mental status changes [Unknown]
  - Malnutrition [Unknown]
  - Cardiac disorder [Unknown]
  - Mitral valve incompetence [Unknown]
  - Mitral valve calcification [Unknown]
  - Aortic valve sclerosis [Unknown]
  - Adenocarcinoma [Unknown]
  - Mood swings [Unknown]
  - Hot flush [Unknown]
  - Hyperhidrosis [Unknown]
  - Diarrhoea [Unknown]
  - Sciatica [Unknown]
  - Hepatic cyst [Recovered/Resolved]
  - Adenoma benign [Unknown]
  - Atelectasis [Unknown]
  - Enterocolitis haemorrhagic [Unknown]
  - Adenoma benign [Unknown]
  - Red blood cell count decreased [Unknown]
  - Haemoglobin decreased [Unknown]
  - Haematocrit decreased [Unknown]
  - Red cell distribution width increased [Unknown]
  - Neutrophil count increased [Unknown]
  - Lymphocyte count decreased [Unknown]
  - Monocyte count increased [Unknown]
  - Rib fracture [Unknown]
  - Breast cyst [Unknown]
  - Hypersensitivity [Unknown]
  - Onychalgia [Unknown]
  - Nail infection [Unknown]
  - Fungal infection [Unknown]
  - Malaise [Unknown]
  - Phlebolith [Unknown]
  - Aortic calcification [Unknown]
  - Hilar lymphadenopathy [Unknown]
  - Renal cyst [Unknown]
  - Hepatic steatosis [Unknown]
  - Oral pain [Unknown]
  - Hypoaesthesia oral [Unknown]
  - Oral discomfort [Unknown]
  - Convulsion [Unknown]
  - Coma [Unknown]
  - Tachycardia [Unknown]
